FAERS Safety Report 12989863 (Version 2)
Quarter: 2016Q4

REPORT INFORMATION
  Report Type: Report from Study
  Country: CA (occurrence: CA)
  Receive Date: 20161201
  Receipt Date: 20161206
  Transmission Date: 20170207
  Serious: Yes (Other)
  Sender: FDA-Public Use
  Company Number: CA-AMGEN-CANSL2016169015

PATIENT
  Age: 70 Year
  Sex: Female

DRUGS (1)
  1. REPATHA [Suspect]
     Active Substance: EVOLOCUMAB
     Indication: PRODUCT USED FOR UNKNOWN INDICATION
     Dosage: 140 MG/1.0 ML
     Route: 065

REACTIONS (11)
  - Activities of daily living impaired [Unknown]
  - Pain in extremity [Unknown]
  - Pruritus [Unknown]
  - Musculoskeletal disorder [Unknown]
  - Palmar erythema [Unknown]
  - Dyspnoea [Unknown]
  - Dysphagia [Unknown]
  - Paraesthesia [Unknown]
  - Local swelling [Unknown]
  - Musculoskeletal stiffness [Unknown]
  - Condition aggravated [Not Recovered/Not Resolved]

NARRATIVE: CASE EVENT DATE: 201610
